FAERS Safety Report 17694291 (Version 12)
Quarter: 2020Q3

REPORT INFORMATION
  Report Type: Report from Study
  Country: IN (occurrence: IN)
  Receive Date: 20200422
  Receipt Date: 20200625
  Transmission Date: 20201104
  Serious: Yes (Other)
  Sender: FDA-Public Use
  Company Number: NVSC2019IN074432

PATIENT
  Age: 64 Year
  Sex: Male
  Weight: 104.6 kg

DRUGS (12)
  1. GALVUS [Suspect]
     Active Substance: VILDAGLIPTIN
     Indication: DIABETES MELLITUS
     Dosage: 1 DF, BID, (1?0?1) (STARTED TAKING FROM 5 YEARS) (DIABETES SINCE 30 YEARS)
     Route: 048
  2. EXERMET [Concomitant]
     Active Substance: METFORMIN HYDROCHLORIDE
     Indication: PRODUCT USED FOR UNKNOWN INDICATION
     Route: 065
  3. VOLIBO [Concomitant]
     Active Substance: VOGLIBOSE
     Indication: DIABETES MELLITUS
     Dosage: UNK, QD
     Route: 065
  4. TELVAS [Concomitant]
     Indication: BLOOD PRESSURE ABNORMAL
     Dosage: 1 DF
     Route: 048
  5. INVOKANA [Concomitant]
     Active Substance: CANAGLIFLOZIN
     Indication: DIABETES MELLITUS
     Dosage: UNK UNK, BID
     Route: 048
  6. GALVUS MET [Suspect]
     Active Substance: METFORMIN HYDROCHLORIDE\VILDAGLIPTIN
     Dosage: 1 DF, BID, (1?0?1) (METFORMIN 500, VILDAGLIPTIN 50 MG)
     Route: 048
     Dates: start: 20200108
  7. ROSMI [Concomitant]
     Indication: BLOOD CHOLESTEROL ABNORMAL
     Dosage: 10 MG, QD (0?0?1)
     Route: 048
  8. GLUCOMET [Concomitant]
     Indication: DIABETES MELLITUS
     Dosage: 1 DF, BID, (1?0?1) (STARTED TAKING FROM 5 YEARS)
     Route: 048
  9. TRIVOLIB [Concomitant]
     Indication: DIABETES MELLITUS
     Dosage: 2 OT
     Route: 048
  10. GALVUS MET [Suspect]
     Active Substance: METFORMIN HYDROCHLORIDE\VILDAGLIPTIN
     Indication: DIABETES MELLITUS
     Dosage: 1 DF, BID (1?0?1) POST MEAL,STARTED TAKING FROM 5 YEARS
     Route: 048
  11. TRYPTOMER [Concomitant]
     Active Substance: AMITRIPTYLINE
     Indication: PRODUCT USED FOR UNKNOWN INDICATION
     Dosage: 10 OT (1/2 AS REPORTED)
     Route: 065
  12. FLOTRAL [Concomitant]
     Indication: PRODUCT USED FOR UNKNOWN INDICATION
     Route: 065

REACTIONS (14)
  - Hypoglycaemia [Unknown]
  - Asthenia [Unknown]
  - Diarrhoea [Unknown]
  - Obesity [Unknown]
  - Chest pain [Unknown]
  - Abdominal pain upper [Unknown]
  - Dyspnoea [Unknown]
  - Cough [Unknown]
  - Decreased appetite [Unknown]
  - Hypertension [Unknown]
  - Blood pressure diastolic increased [Unknown]
  - Blood pressure systolic decreased [Unknown]
  - Hyperglycaemia [Unknown]
  - Burning sensation [Unknown]

NARRATIVE: CASE EVENT DATE: 20200204
